FAERS Safety Report 10083349 (Version 1)
Quarter: 2014Q2

REPORT INFORMATION
  Report Type: Spontaneous
  Country: US (occurrence: None)
  Receive Date: 20140415
  Receipt Date: 20140415
  Transmission Date: 20141212
  Serious: Yes (Disabling)
  Sender: FDA-Public Use
  Company Number: None

PATIENT
  Age: 49 Year
  Sex: Female
  Weight: 97.52 kg

DRUGS (1)
  1. CUBICIN 500 MG CUBIST PHARMACEUTICALS, INC. [Suspect]
     Indication: STAPHYLOCOCCAL INFECTION
     Dosage: 500MG ONCE DAILY, INTO A VEIN
     Route: 042
     Dates: start: 20140320, end: 20140331

REACTIONS (3)
  - Gait disturbance [None]
  - Muscle disorder [None]
  - Arthropathy [None]
